FAERS Safety Report 6787888-4 (Version None)
Quarter: 2010Q2

REPORT INFORMATION
  Report Type: 
  Country: None (occurrence: None)
  Receive Date: 20100623
  Receipt Date: 20070904
  Transmission Date: 20101027
  Serious: No
  Sender: FDA-Public Use
  Company Number: US-PFIZER INC-2007074665

PATIENT
  Sex: Female

DRUGS (4)
  1. DEPO-PROVERA SUSPENSION/INJ [Suspect]
     Dosage: 1ST INJECTION
     Route: 030
     Dates: start: 20070822, end: 20070822
  2. SYNTHROID [Concomitant]
  3. PAXIL [Concomitant]
  4. VICODIN [Concomitant]

REACTIONS (7)
  - ARTHRALGIA [None]
  - BACK PAIN [None]
  - CHILLS [None]
  - FATIGUE [None]
  - HYPERHIDROSIS [None]
  - PELVIC PAIN [None]
  - PYREXIA [None]
